FAERS Safety Report 15401353 (Version 1)
Quarter: 2018Q3

REPORT INFORMATION
  Report Type: Spontaneous
  Country: US (occurrence: US)
  Receive Date: 20180919
  Receipt Date: 20180919
  Transmission Date: 20181010
  Serious: Yes (Other)
  Sender: FDA-Public Use
  Company Number: US-LPDUSPRD-20181714

PATIENT
  Age: 69 Year
  Sex: Female

DRUGS (14)
  1. CYCLOPHOSPHAMIDE. [Suspect]
     Active Substance: CYCLOPHOSPHAMIDE
     Dosage: UNKNOWN
     Route: 065
     Dates: start: 201509, end: 201603
  2. METHYLPREDNISOLONE. [Suspect]
     Active Substance: METHYLPREDNISOLONE
     Dosage: UNKNOWN (MAINTENANCE)
     Route: 065
     Dates: start: 201604, end: 201610
  3. RUXOLITINIB [Suspect]
     Active Substance: RUXOLITINIB
     Dosage: UNKNOWN (IRUX 15?04 TRIAL)
     Route: 065
     Dates: start: 201708, end: 201709
  4. CLARITHROMYCIN. [Suspect]
     Active Substance: CLARITHROMYCIN
     Dosage: UNKNOWN
     Route: 065
     Dates: start: 201710, end: 201711
  5. CARFILZOMIB [Suspect]
     Active Substance: CARFILZOMIB
     Dosage: UNKNOWN
     Route: 065
     Dates: start: 201706, end: 201708
  6. ACYCLOVIR. [Concomitant]
     Active Substance: ACYCLOVIR
     Dosage: 400 MG TWICE DAILY
     Route: 048
  7. PEGYLATED LIPOSOMAL DOXORUBICIN [Suspect]
     Active Substance: DOXORUBICIN
     Dosage: UNKNOWN
     Route: 065
     Dates: start: 201706, end: 201706
  8. ELOTUZUMAB. [Suspect]
     Active Substance: ELOTUZUMAB
     Dosage: UNKNOWN
     Route: 065
     Dates: start: 201610, end: 201612
  9. DARATUMUMAB [Suspect]
     Active Substance: DARATUMUMAB
     Dosage: UNKNOWN
     Route: 065
     Dates: start: 201710, end: 201711
  10. BORTEZOMIB. [Suspect]
     Active Substance: BORTEZOMIB
     Dosage: UNKNOWN
     Route: 065
     Dates: start: 201509, end: 201603
  11. POMALIDOMIDE [Suspect]
     Active Substance: POMALIDOMIDE
     Dosage: UNKNOWN(POM REPLACEMENT TRIAL)
     Route: 065
     Dates: start: 201703, end: 201705
  12. DEXAMETHASONE SODIUM PHOSPHATE INJECTION, USP (4901?25) [Suspect]
     Active Substance: DEXAMETHASONE SODIUM PHOSPHATE
     Dosage: UNKNOWN
     Route: 065
     Dates: start: 201509, end: 201603
  13. LENALIDOMIDE [Suspect]
     Active Substance: LENALIDOMIDE
     Dosage: UNKNOWN
     Route: 065
     Dates: start: 201612, end: 201702
  14. LOCAL RADIOTHERAPY [Suspect]
     Active Substance: RADIATION THERAPY
     Dosage: UNKNOWN
     Route: 065
     Dates: start: 201509, end: 201509

REACTIONS (3)
  - Product use in unapproved indication [Unknown]
  - Plasma cell myeloma [Unknown]
  - Restlessness [Unknown]

NARRATIVE: CASE EVENT DATE: 201509
